FAERS Safety Report 21158486 (Version 3)
Quarter: 2023Q2

REPORT INFORMATION
  Report Type: Spontaneous
  Country: CA (occurrence: CA)
  Receive Date: 20220801
  Receipt Date: 20230413
  Transmission Date: 20230722
  Serious: Yes (Other)
  Sender: FDA-Public Use
  Company Number: CA-SAMSUNG BIOEPIS-SB-2022-18302

PATIENT
  Age: 32 Year
  Sex: Male
  Weight: 82 kg

DRUGS (9)
  1. INFLIXIMAB [Suspect]
     Active Substance: INFLIXIMAB
     Indication: Colitis ulcerative
     Route: 042
  2. INFLIXIMAB [Suspect]
     Active Substance: INFLIXIMAB
     Route: 042
  3. INFLIXIMAB [Suspect]
     Active Substance: INFLIXIMAB
     Route: 042
  4. ASACOL [Concomitant]
     Active Substance: MESALAMINE
     Indication: Product used for unknown indication
     Dosage: UNKNOWN, TABLET (ENTERIC COATED), TWO EVERY ONE DAYS
     Route: 065
  5. ASACOL [Concomitant]
     Active Substance: MESALAMINE
     Dosage: TWO EVERY ONE DAYS
     Route: 065
  6. PREDNISONE [Concomitant]
     Active Substance: PREDNISONE
     Indication: Product used for unknown indication
     Route: 065
  7. PREDNISONE [Concomitant]
     Active Substance: PREDNISONE
     Route: 065
  8. SULFASALAZINE [Concomitant]
     Active Substance: SULFASALAZINE
     Indication: Colitis ulcerative
     Dosage: UNKNOWN, TWO EVERY ONE DAYS
     Route: 065
  9. SULFASALAZINE [Concomitant]
     Active Substance: SULFASALAZINE
     Dosage: TWO EVERY ONE DAYS
     Route: 065

REACTIONS (10)
  - COVID-19 [Recovered/Resolved]
  - Cellulitis [Recovered/Resolved]
  - Condition aggravated [Recovered/Resolved]
  - Loss of personal independence in daily activities [Recovered/Resolved]
  - Weight decreased [Recovered/Resolved]
  - Nasopharyngitis [Recovered/Resolved]
  - Therapeutic response decreased [Recovered/Resolved]
  - Drug ineffective [Recovered/Resolved]
  - Inappropriate schedule of product administration [Recovered/Resolved]
  - Off label use [Recovered/Resolved]
